FAERS Safety Report 8534343-7 (Version None)
Quarter: 2012Q2

REPORT INFORMATION
  Report Type: 
  Country: None (occurrence: None)
  Receive Date: 20120412
  Receipt Date: 20090529
  Transmission Date: 20120825
  Serious: Yes (Other)
  Sender: FDA-Public Use
  Company Number: PHEH2009US04694

PATIENT
  Age: 66 Year
  Sex: Female
  Weight: 93.4 kg

DRUGS (15)
  1. DEPAKOTE [Concomitant]
  2. CELEXA [Concomitant]
  3. VITAMIN D [Concomitant]
  4. CLOZAPINE [Suspect]
     Indication: SCHIZOAFFECTIVE DISORDER
     Dosage: 100 MG, QHS, ORAL, 100 MG, BID, ORAL, 50 MG QAM, 100 MG QPM, ORAL, 100 MG, QHS, ORAL
     Route: 048
     Dates: start: 20030101, end: 20070401
  5. CLOZAPINE [Suspect]
     Indication: SCHIZOAFFECTIVE DISORDER
     Dosage: 100 MG, QHS, ORAL, 100 MG, BID, ORAL, 50 MG QAM, 100 MG QPM, ORAL, 100 MG, QHS, ORAL
     Route: 048
     Dates: start: 20020321, end: 20030101
  6. CLOZAPINE [Suspect]
     Indication: SCHIZOAFFECTIVE DISORDER
     Dosage: 100 MG, QHS, ORAL, 100 MG, BID, ORAL, 50 MG QAM, 100 MG QPM, ORAL, 100 MG, QHS, ORAL
     Route: 048
     Dates: start: 20090201
  7. CLOZAPINE [Suspect]
     Indication: SCHIZOAFFECTIVE DISORDER
     Dosage: 100 MG, QHS, ORAL, 100 MG, BID, ORAL, 50 MG QAM, 100 MG QPM, ORAL, 100 MG, QHS, ORAL
     Route: 048
     Dates: start: 20070401, end: 20090201
  8. GLYBURIDE [Concomitant]
  9. METFFORMIN HYDROCHLORIDE [Concomitant]
  10. LANTUS [Concomitant]
  11. ASPIRIN [Concomitant]
  12. TOPROL-XL [Concomitant]
  13. CALCIUM CARBONATE [Concomitant]
  14. LISINOPRIL [Concomitant]
  15. SIMVASTATIN [Concomitant]

REACTIONS (3)
  - NEUTROPHIL COUNT ABNORMAL [None]
  - PSYCHOTIC DISORDER [None]
  - SOMNOLENCE [None]
